FAERS Safety Report 20966596 (Version 1)
Quarter: 2022Q2

REPORT INFORMATION
  Report Type: Spontaneous
  Country: US (occurrence: None)
  Receive Date: 20220615
  Receipt Date: 20220615
  Transmission Date: 20220721
  Serious: Yes (Other)
  Sender: FDA-Public Use
  Company Number: None

PATIENT
  Age: 61 Year
  Sex: 0
  Weight: 81.6 kg

DRUGS (10)
  1. BEBTELOVIMAB [Suspect]
     Active Substance: BEBTELOVIMAB
     Indication: SARS-CoV-2 test positive
     Dosage: OTHER FREQUENCY : ONCE;?
     Route: 042
     Dates: start: 20220520, end: 20220520
  2. ACETAMINOPHEN [Concomitant]
     Active Substance: ACETAMINOPHEN
  3. CARVEDILOL [Concomitant]
     Active Substance: CARVEDILOL
  4. FUROSEMIDE [Concomitant]
     Active Substance: FUROSEMIDE
  5. NITROGLYCERIN [Concomitant]
     Active Substance: NITROGLYCERIN
  6. ZOFRAN [Concomitant]
     Active Substance: ONDANSETRON HYDROCHLORIDE
  7. ENTRESTO [Concomitant]
     Active Substance: SACUBITRIL\VALSARTAN
  8. SIMVASTATIN [Concomitant]
     Active Substance: SIMVASTATIN
  9. SPIRONOLACTONE [Concomitant]
     Active Substance: SPIRONOLACTONE
  10. TRAZODONE [Concomitant]
     Active Substance: TRAZODONE HYDROCHLORIDE

REACTIONS (1)
  - Infusion related reaction [None]

NARRATIVE: CASE EVENT DATE: 20220520
